FAERS Safety Report 6675036-0 (Version None)
Quarter: 2010Q2

REPORT INFORMATION
  Report Type: 
  Country: None (occurrence: None)
  Receive Date: 20100409
  Receipt Date: 20100405
  Transmission Date: 20101027
  Serious: Yes (Other)
  Sender: FDA-Public Use
  Company Number: BR-BRISTOL-MYERS SQUIBB COMPANY-14940985

PATIENT
  Age: 62 Year
  Sex: Male
  Weight: 99 kg

DRUGS (3)
  1. CETUXIMAB [Suspect]
     Indication: NON-SMALL CELL LUNG CANCER
     Dosage: 250MG/M2 WEEKLY,500MG/M2 EVERY TWO WEEKS
     Route: 042
     Dates: start: 20090818, end: 20091208
  2. CISPLATIN [Suspect]
     Indication: NON-SMALL CELL LUNG CANCER
     Dosage: ON DAY 1 OF 21 DAY CYCLE;RECENT INF 08SEP09
     Route: 042
     Dates: start: 20090818, end: 20091020
  3. VINORELBINE [Suspect]
     Indication: NON-SMALL CELL LUNG CANCER
     Dosage: ON DAY 1,8 OF 21 DAY CYCLE;RECENT INF ON 06OCT09
     Route: 042
     Dates: start: 20090818, end: 20091027

REACTIONS (1)
  - HYPERGLYCAEMIA [None]
